FAERS Safety Report 4567175-5 (Version None)
Quarter: 2005Q1

REPORT INFORMATION
  Report Type: 
  Country: None (occurrence: None)
  Receive Date: 20050127
  Receipt Date: 20050117
  Transmission Date: 20050727
  Serious: Yes (Other)
  Sender: FDA-Public Use
  Company Number: S05-USA-00268-01

PATIENT
  Age: 15 Year
  Sex: Female
  Weight: 68.9467 kg

DRUGS (2)
  1. LEXAPRO [Suspect]
     Indication: ANXIETY
     Dosage: 20 MG QD PO
     Route: 048
     Dates: start: 20040101
  2. BIAXIN [Suspect]
     Indication: LYME DISEASE
     Dosage: 500 MG BID
     Dates: start: 20040101, end: 20050101

REACTIONS (7)
  - AGGRESSION [None]
  - CONVULSION [None]
  - DEPRESSION [None]
  - DRUG INTERACTION [None]
  - FEELING HOT [None]
  - HYPERHIDROSIS [None]
  - SUICIDAL IDEATION [None]
